FAERS Safety Report 9867497 (Version 1)
Quarter: 2014Q1

REPORT INFORMATION
  Report Type: Spontaneous
  Country: JP (occurrence: JP)
  Receive Date: 20140204
  Receipt Date: 20140204
  Transmission Date: 20141002
  Serious: Yes (Other)
  Sender: FDA-Public Use
  Company Number: JP-BRISTOL-MYERS SQUIBB COMPANY-20134391

PATIENT
  Age: 27 Year
  Sex: Female

DRUGS (2)
  1. ABILIFY DISCMELT TABS [Suspect]
     Indication: SCHIZOPHRENIA
     Dosage: JUL2013-09JAN2014:30MG?DOSE REDUCED TO 12MG/DAY,10JAN14
     Route: 048
     Dates: start: 201307
  2. RISPERDAL [Concomitant]
     Dates: start: 201307, end: 20140109

REACTIONS (2)
  - Abortion induced [Unknown]
  - Pregnancy [Recovered/Resolved]
